FAERS Safety Report 7112356-X (Version None)
Quarter: 2010Q4

REPORT INFORMATION
  Report Type: 
  Country: None (occurrence: None)
  Receive Date: 20101119
  Receipt Date: 20101018
  Transmission Date: 20110411
  Serious: No
  Sender: FDA-Public Use
  Company Number: A0878654A

PATIENT
  Age: 68 Year
  Sex: Male

DRUGS (10)
  1. AVODART [Suspect]
     Indication: BENIGN PROSTATIC HYPERPLASIA
     Dosage: 1CAP PER DAY
     Route: 048
     Dates: start: 20050801
  2. FLOMAX [Concomitant]
  3. ZOCOR [Concomitant]
  4. UNSPECIFIED MEDICATION [Concomitant]
  5. LUMIGAN EYE DROPS [Concomitant]
  6. ISALON [Concomitant]
  7. PROBIOTIC [Concomitant]
  8. VITAMIN D [Concomitant]
  9. ALLEGRA [Concomitant]
  10. NASACORT [Concomitant]

REACTIONS (2)
  - COLD SWEAT [None]
  - PRODUCT QUALITY ISSUE [None]
